FAERS Safety Report 23627786 (Version 1)
Quarter: 2024Q1

REPORT INFORMATION
  Report Type: Spontaneous
  Country: US (occurrence: None)
  Receive Date: 20240313
  Receipt Date: 20240313
  Transmission Date: 20240410
  Serious: Yes (Hospitalization)
  Sender: FDA-Public Use
  Company Number: None

PATIENT
  Age: 89 Year
  Sex: Female

DRUGS (1)
  1. PIRFENIDONE [Suspect]
     Active Substance: PIRFENIDONE
     Indication: Interstitial lung disease
     Dosage: 801MG THREE TIMES PER DAY ORAL
     Route: 048
     Dates: start: 20220622

REACTIONS (4)
  - Cardiac failure congestive [None]
  - Pneumonia [None]
  - Pleural effusion [None]
  - Atrial fibrillation [None]

NARRATIVE: CASE EVENT DATE: 20240210
